FAERS Safety Report 26124850 (Version 1)
Quarter: 2025Q4

REPORT INFORMATION
  Report Type: 
  Country: CN (occurrence: CN)
  Receive Date: 20251205
  Receipt Date: 20251205
  Transmission Date: 20260117
  Serious: Yes (Other)
  Sender: AKESO BIOPHARMA CO., LTD.
  Company Number: CN-Akeso Biopharma Co., Ltd.-2189915

PATIENT
  Age: 55 Year
  Sex: Female
  Weight: 45 kg

DRUGS (4)
  1. PENPULIMAB-KCQX [Suspect]
     Active Substance: PENPULIMAB-KCQX
     Indication: Tongue neoplasm malignant stage unspecified
     Dates: start: 20251028, end: 20251031
  2. CISPLATIN [Suspect]
     Active Substance: CISPLATIN
     Dates: start: 20251029, end: 20251031
  3. TEMOZOLOMIDE [Suspect]
     Active Substance: TEMOZOLOMIDE
     Dates: start: 20251029, end: 20251101
  4. PACLITAXEL [Suspect]
     Active Substance: PACLITAXEL
     Dates: start: 20251028, end: 20251031

REACTIONS (1)
  - Transaminases increased [Recovering/Resolving]

NARRATIVE: CASE EVENT DATE: 20251031
